FAERS Safety Report 25841309 (Version 1)
Quarter: 2025Q3

REPORT INFORMATION
  Report Type: Spontaneous
  Country: US (occurrence: US)
  Receive Date: 20250924
  Receipt Date: 20250924
  Transmission Date: 20251020
  Serious: Yes (Hospitalization, Other)
  Sender: PFIZER
  Company Number: US-PFIZER INC-202500140471

PATIENT
  Age: 74 Year
  Sex: Female
  Weight: 47.62 kg

DRUGS (4)
  1. IBRANCE [Suspect]
     Active Substance: PALBOCICLIB
     Indication: Hormone receptor positive breast cancer
     Dates: start: 20250707
  2. IBRANCE [Suspect]
     Active Substance: PALBOCICLIB
     Route: 048
  3. CARBIDOPA\LEVODOPA [Concomitant]
     Active Substance: CARBIDOPA\LEVODOPA
  4. TRAMADOL [Concomitant]
     Active Substance: TRAMADOL

REACTIONS (18)
  - Full blood count decreased [Not Recovered/Not Resolved]
  - Thrombosis [Not Recovered/Not Resolved]
  - Gait disturbance [Not Recovered/Not Resolved]
  - Fall [Not Recovered/Not Resolved]
  - Head injury [Not Recovered/Not Resolved]
  - Headache [Not Recovered/Not Resolved]
  - Concussion [Not Recovered/Not Resolved]
  - Somnolence [Not Recovered/Not Resolved]
  - Amnesia [Not Recovered/Not Resolved]
  - Muscle spasms [Not Recovered/Not Resolved]
  - Peripheral swelling [Not Recovered/Not Resolved]
  - Paraesthesia [Not Recovered/Not Resolved]
  - Swelling [Not Recovered/Not Resolved]
  - Hypoaesthesia [Not Recovered/Not Resolved]
  - Cardiovascular disorder [Not Recovered/Not Resolved]
  - Gastrointestinal disorder [Not Recovered/Not Resolved]
  - Vomiting [Not Recovered/Not Resolved]
  - Nail disorder [Not Recovered/Not Resolved]
